FAERS Safety Report 8790474 (Version 1)
Quarter: 2012Q4

REPORT INFORMATION
  Report Type: Spontaneous
  Country: US (occurrence: None)
  Receive Date: 20120911
  Receipt Date: 20120911
  Transmission Date: 20130627
  Serious: Yes (Life-Threatening, Hospitalization)
  Sender: FDA-Public Use
  Company Number: None

PATIENT
  Age: 61 Year
  Sex: Male
  Weight: 68 kg

DRUGS (2)
  1. WARFARIN [Suspect]
     Indication: DEEP VEIN THROMBOSIS
     Route: 048
     Dates: start: 20120515, end: 20120815
  2. PRASUGREL [Suspect]
     Indication: CORONARY STENT PLACEMENT
     Route: 048
     Dates: start: 20120515

REACTIONS (11)
  - Gastric haemorrhage [None]
  - Dizziness [None]
  - Hypotension [None]
  - Oedema [None]
  - Dyspnoea [None]
  - Chest pain [None]
  - Fatigue [None]
  - Fall [None]
  - Haemoglobin decreased [None]
  - International normalised ratio increased [None]
  - Melaena [None]
